FAERS Safety Report 10064200 (Version 1)
Quarter: 2013Q4

REPORT INFORMATION
  Report Type: Spontaneous
  Country: US (occurrence: None)
  Receive Date: 20131129
  Receipt Date: 20131129
  Transmission Date: 20140711
  Serious: Yes (Other)
  Sender: FDA-Public Use
  Company Number: 2013-00148

PATIENT
  Age: 77 Year
  Sex: Female
  Weight: 51.26 kg

DRUGS (8)
  1. ZICAM COLD REMEDY PLUS ORAL MIST [Suspect]
     Indication: NASOPHARYNGITIS
     Dosage: SPRAYED ORALLY 3X DAILY
     Route: 048
     Dates: start: 20131122, end: 20131123
  2. METROPROLOL [Concomitant]
  3. METHIMAZOLE [Concomitant]
  4. MACRODANTIN [Concomitant]
  5. ZETIA [Concomitant]
  6. BUSPIRONE HCL [Concomitant]
  7. BIOTIN [Concomitant]
  8. VITAMIN D3 [Concomitant]

REACTIONS (1)
  - Arrhythmia [None]
